FAERS Safety Report 19099663 (Version 2)
Quarter: 2021Q2

REPORT INFORMATION
  Report Type: Report from Study
  Country: CO (occurrence: CO)
  Receive Date: 20210406
  Receipt Date: 20210408
  Transmission Date: 20210717
  Serious: Yes (Hospitalization, Other)
  Sender: FDA-Public Use
  Company Number: CO-TAKEDA-CO202022429

PATIENT
  Age: 50 Year
  Sex: Female
  Weight: 60 kg

DRUGS (8)
  1. ICATIBANT [Suspect]
     Active Substance: ICATIBANT ACETATE
     Dosage: 30 MILLIGRAM, AS REQ^D (IF EPISODE PERSISTS, APPLY 1 EVERY 6 HOURS, MAXIMUM OF 3 IN 24 HOURS)
     Route: 065
     Dates: start: 20200727, end: 20200729
  2. ICATIBANT [Suspect]
     Active Substance: ICATIBANT ACETATE
     Dosage: 30 MILLIGRAM, AS REQ^D (IF EPISODE PERSISTS, APPLY 1 EVERY 6 HOURS, MAXIMUM OF 3 IN 24 HOURS)
     Route: 065
     Dates: start: 20200707, end: 20200708
  3. ICATIBANT [Suspect]
     Active Substance: ICATIBANT ACETATE
     Dosage: 30 MILLIGRAM, AS REQ^D (IF EPISODE PERSISTS, APPLY 1 EVERY 6 HOURS, MAXIMUM OF 3 IN 24 HOURS)
     Route: 065
     Dates: start: 20200727, end: 20200729
  4. ICATIBANT [Suspect]
     Active Substance: ICATIBANT ACETATE
     Dosage: 30 MILLIGRAM, AS REQ^D (IF EPISODE PERSISTS, APPLY 1 EVERY 6 HOURS, MAXIMUM OF 3 IN 24 HOURS)
     Route: 065
     Dates: start: 20200707, end: 20200708
  5. ICATIBANT [Suspect]
     Active Substance: ICATIBANT ACETATE
     Dosage: 30 MILLIGRAM, AS REQ^D
     Route: 065
     Dates: start: 20200922, end: 20200923
  6. ICATIBANT [Suspect]
     Active Substance: ICATIBANT ACETATE
     Indication: HEREDITARY ANGIOEDEMA
     Dosage: 30 MILLIGRAM, AS REQ^D (IF EPISODE PERSISTS, APPLY 1 EVERY 6 HOURS, MAXIMUM OF 3 IN 24 HOURS)
     Route: 065
     Dates: start: 20190528
  7. ICATIBANT [Suspect]
     Active Substance: ICATIBANT ACETATE
     Dosage: 30 MILLIGRAM, AS REQ^D
     Route: 065
     Dates: start: 20200922, end: 20200923
  8. ICATIBANT [Suspect]
     Active Substance: ICATIBANT ACETATE
     Indication: HEREDITARY ANGIOEDEMA
     Dosage: 30 MILLIGRAM, AS REQ^D (IF EPISODE PERSISTS, APPLY 1 EVERY 6 HOURS, MAXIMUM OF 3 IN 24 HOURS)
     Route: 065
     Dates: start: 20190528

REACTIONS (1)
  - Pancreatitis [Not Recovered/Not Resolved]

NARRATIVE: CASE EVENT DATE: 20210329
